FAERS Safety Report 5695092-6 (Version None)
Quarter: 2008Q2

REPORT INFORMATION
  Report Type: 
  Country: None (occurrence: None)
  Receive Date: 20080404
  Receipt Date: 20080328
  Transmission Date: 20081010
  Serious: Yes (Other)
  Sender: FDA-Public Use
  Company Number: JP-PFIZER INC-2008020644

PATIENT
  Sex: Female
  Weight: 53 kg

DRUGS (5)
  1. ZOLOFT [Suspect]
     Indication: BIPOLAR DISORDER
     Dosage: DAILY DOSE:100MG
     Dates: start: 20080215, end: 20080226
  2. ZOLOFT [Suspect]
     Indication: DEPRESSION
  3. RESLIN [Suspect]
     Indication: BIPOLAR DISORDER
     Route: 048
     Dates: start: 20080208, end: 20080226
  4. RESLIN [Suspect]
     Indication: DEPRESSION
  5. DEPAS [Suspect]
     Route: 048
     Dates: start: 20080208, end: 20080226

REACTIONS (5)
  - DELUSION [None]
  - DEPRESSION [None]
  - DIZZINESS [None]
  - HALLUCINATION [None]
  - STUPOR [None]
